FAERS Safety Report 5827335-X (Version None)
Quarter: 2008Q3

REPORT INFORMATION
  Report Type: 
  Country: None (occurrence: None)
  Receive Date: 20080730
  Receipt Date: 20080728
  Transmission Date: 20090109
  Serious: Yes (Hospitalization, Other)
  Sender: FDA-Public Use
  Company Number: HQWYE703304MAY04

PATIENT
  Sex: Female
  Weight: 34.4 kg

DRUGS (5)
  1. SIROLIMUS [Suspect]
     Indication: PROPHYLAXIS AGAINST TRANSPLANT REJECTION
     Route: 048
     Dates: start: 20031104, end: 20040401
  2. SIROLIMUS [Suspect]
     Route: 048
     Dates: start: 20040401, end: 20040401
  3. SIROLIMUS [Suspect]
     Route: 048
     Dates: start: 20040401
  4. METHYLPREDNISOLONE [Concomitant]
     Indication: IMMUNOSUPPRESSION
     Route: 048
     Dates: start: 20030719
  5. MYCOPHENOLATE MOFETIL [Concomitant]
     Indication: IMMUNOSUPPRESSION
     Route: 048
     Dates: start: 20031230

REACTIONS (1)
  - PULMONARY TUBERCULOSIS [None]
